FAERS Safety Report 7155465-1 (Version None)
Quarter: 2010Q4

REPORT INFORMATION
  Report Type: 
  Country: None (occurrence: None)
  Receive Date: 20101214
  Receipt Date: 20101206
  Transmission Date: 20110411
  Serious: No
  Sender: FDA-Public Use
  Company Number: US-BIOGENIDEC-2010BI043086

PATIENT
  Sex: Female

DRUGS (2)
  1. TYSABRI [Suspect]
     Indication: MULTIPLE SCLEROSIS
     Route: 042
     Dates: start: 20091102
  2. TYSABRI [Suspect]
     Route: 042
     Dates: start: 20070703, end: 20090202

REACTIONS (2)
  - FATIGUE [None]
  - MACULAR DEGENERATION [None]
